FAERS Safety Report 8215230-0 (Version None)
Quarter: 2012Q1

REPORT INFORMATION
  Report Type: 
  Country: None (occurrence: None)
  Receive Date: 20120316
  Receipt Date: 20120302
  Transmission Date: 20120608
  Serious: Yes (Hospitalization)
  Sender: FDA-Public Use
  Company Number: DE-MYLANLABS-2011S1014020

PATIENT
  Sex: Female

DRUGS (5)
  1. PYRIDOXINE HCL [Concomitant]
     Route: 065
  2. SULTIAME [Concomitant]
     Indication: CONVULSION
     Route: 065
  3. PHENOBARBITAL TAB [Concomitant]
     Indication: CONVULSION
     Route: 065
  4. VALPROIC ACID [Suspect]
     Indication: CONVULSION
     Route: 065
  5. VALPROIC ACID [Suspect]
     Route: 065

REACTIONS (2)
  - RHABDOMYOLYSIS [None]
  - RESPIRATORY FAILURE [None]
